FAERS Safety Report 18501811 (Version 3)
Quarter: 2020Q4

REPORT INFORMATION
  Report Type: Report from Study
  Country: BR (occurrence: BR)
  Receive Date: 20201113
  Receipt Date: 20201202
  Transmission Date: 20210114
  Serious: Yes (Death, Hospitalization)
  Sender: FDA-Public Use
  Company Number: BR-ROCHE-2712295

PATIENT
  Age: 83 Year
  Sex: Female
  Weight: 35 kg

DRUGS (12)
  1. BUTYLSCOPOLAMINE [Concomitant]
     Active Substance: BUTYLSCOPOLAMINE
     Indication: CONSTIPATION
     Dosage: 1 AMPULE
     Route: 042
     Dates: start: 20200127, end: 20200204
  2. ATEZOLIZUMAB. [Suspect]
     Active Substance: ATEZOLIZUMAB
     Indication: BREAST CANCER
     Dosage: ON 12/NOV/2019, AT 12:30 HOURS; MOST RECENT DOSE (840 MG) OF ATEZOLIZUMAB ADMINISTERED PRIOR TO AE/S
     Route: 041
  3. PACLITAXEL. [Suspect]
     Active Substance: PACLITAXEL
     Indication: BREAST CANCER
     Dosage: ON 12/NOV/2019, AT 13:55 HOURS; MOST RECENT DOSE (80 MG/M2) OF PACLITAXEL PRIOR TO AE/SAE ONSET ADMI
     Route: 042
     Dates: start: 20191001
  4. LOPERAMIDE [Suspect]
     Active Substance: LOPERAMIDE
     Indication: BREAST CANCER
     Dosage: ON 18/NOV/2019, MOST RECENT DOSE (2 MG) OF LOPERAMIDE ADMINISTERED PRIOR TO AE ONSET.
     Route: 048
     Dates: start: 20191001
  5. SIMVASTATIN. [Concomitant]
     Active Substance: SIMVASTATIN
     Indication: DYSLIPIDAEMIA
     Route: 048
     Dates: start: 2015
  6. ATENOLOL. [Concomitant]
     Active Substance: ATENOLOL
     Indication: HYPERTENSION
     Route: 048
     Dates: start: 1999
  7. METOCLOPRAMIDA [Concomitant]
     Active Substance: METOCLOPRAMIDE HYDROCHLORIDE
     Indication: VOMITING
     Route: 048
     Dates: start: 20191027
  8. IPATASERTIB. [Suspect]
     Active Substance: IPATASERTIB
     Indication: BREAST CANCER
     Dosage: ON 18/NOV/2019, MOST RECENT DOSE OF IPATASERTIB (200 MG) ADMINISTERED PRIOR TO AE/SAE ONSET.
     Route: 048
     Dates: start: 20191001
  9. CHLORTHALIDONE. [Concomitant]
     Active Substance: CHLORTHALIDONE
     Indication: HYPERTENSION
     Route: 048
     Dates: start: 1999
  10. ONDANSETRON [Concomitant]
     Active Substance: ONDANSETRON
     Indication: VOMITING
     Route: 048
     Dates: start: 20191004
  11. ONDANSETRON [Concomitant]
     Active Substance: ONDANSETRON
     Route: 048
     Dates: start: 20191027
  12. SOMALGIN CARDIO [Concomitant]
     Active Substance: ASPIRIN\DIHYDROXYALUMINUM AMINOACETATE ANHYDROUS\MAGNESIUM CARBONATE
     Indication: HYPERTENSION
     Route: 048
     Dates: start: 1999

REACTIONS (2)
  - Emphysematous cystitis [Not Recovered/Not Resolved]
  - Pneumonia [Fatal]

NARRATIVE: CASE EVENT DATE: 20200127
